FAERS Safety Report 8676459 (Version 3)
Quarter: 2013Q4

REPORT INFORMATION
  Report Type: Spontaneous
  Country: US (occurrence: US)
  Receive Date: 20120721
  Receipt Date: 20131101
  Transmission Date: 20140711
  Serious: No
  Sender: FDA-Public Use
  Company Number: US-009507513-1207USA007077

PATIENT
  Age: 66 Year
  Sex: Male
  Weight: 74.83 kg

DRUGS (3)
  1. LOTRIMIN ULTRA [Suspect]
     Indication: PRURITUS
     Dosage: BID
     Route: 061
     Dates: start: 20120505, end: 20120520
  2. LOTRIMIN ULTRA [Suspect]
     Indication: MEDICAL OBSERVATION
  3. SIMVASTATIN [Concomitant]
     Indication: PRODUCT USED FOR UNKNOWN INDICATION
     Dosage: 20 MG, UNKNOWN

REACTIONS (3)
  - Skin irritation [Recovered/Resolved]
  - Condition aggravated [Recovered/Resolved]
  - Drug ineffective [Unknown]
